FAERS Safety Report 8223405-X (Version None)
Quarter: 2012Q1

REPORT INFORMATION
  Report Type: 
  Country: None (occurrence: None)
  Receive Date: 20120321
  Receipt Date: 20120315
  Transmission Date: 20120608
  Serious: Yes (Life-Threatening)
  Sender: FDA-Public Use
  Company Number: JP-CELGENEUS-087-50794-12032052

PATIENT
  Sex: Male

DRUGS (2)
  1. PROCHLORPERAZINE [Concomitant]
     Route: 065
  2. VIDAZA [Suspect]
     Route: 065
     Dates: start: 20110414

REACTIONS (1)
  - ILEUS [None]
